FAERS Safety Report 9845293 (Version 1)
Quarter: 2014Q1

REPORT INFORMATION
  Report Type: Spontaneous
  Country: US (occurrence: US)
  Receive Date: 20140127
  Receipt Date: 20140127
  Transmission Date: 20141002
  Serious: No
  Sender: FDA-Public Use
  Company Number: US-BAUSCH-BL-2013-006756

PATIENT
  Sex: Female

DRUGS (1)
  1. ZYLET (LOTEPREDNOL ETABONATE 0.5% AND TOBRAMYCIN 0.3% OPHTHALMIC SUSPE [Suspect]
     Indication: EYE INFECTION
     Dosage: UNKNOWN DOSAGE; OPHTHALMIC
     Route: 047

REACTIONS (1)
  - Sensation of foreign body [Unknown]
